FAERS Safety Report 7071618-5 (Version None)
Quarter: 2010Q4

REPORT INFORMATION
  Report Type: 
  Country: None (occurrence: None)
  Receive Date: 20101029
  Receipt Date: 20090928
  Transmission Date: 20110411
  Serious: No
  Sender: FDA-Public Use
  Company Number: A0809332A

PATIENT
  Age: 64 Year
  Sex: Female

DRUGS (3)
  1. ADVAIR DISKUS 100/50 [Suspect]
     Indication: ASTHMA
     Route: 055
     Dates: start: 20090401
  2. SINGULAIR [Concomitant]
  3. GLIMEPIRIDE [Concomitant]

REACTIONS (5)
  - BREATH SOUNDS ABNORMAL [None]
  - CHEST PAIN [None]
  - DRUG INEFFECTIVE [None]
  - ILL-DEFINED DISORDER [None]
  - WHEEZING [None]
